FAERS Safety Report 16526594 (Version 2)
Quarter: 2019Q3

REPORT INFORMATION
  Report Type: Spontaneous
  Country: FR (occurrence: FR)
  Receive Date: 20190703
  Receipt Date: 20190710
  Transmission Date: 20191004
  Serious: Yes (Life-Threatening)
  Sender: FDA-Public Use
  Company Number: FR-MYLANLABS-2019M1062073

PATIENT
  Age: 47 Year
  Sex: Male

DRUGS (5)
  1. RIBAVIRIN. [Suspect]
     Active Substance: RIBAVIRIN
     Indication: HEPATITIS C
     Dosage: INCONNU
     Dates: start: 200301, end: 20030714
  2. CYCLOPHOSPHAMIDE. [Suspect]
     Active Substance: CYCLOPHOSPHAMIDE
     Indication: ACUTE MYELOID LEUKAEMIA
     Dosage: INCONNU
     Route: 051
     Dates: start: 1985, end: 1985
  3. METHOTREXATE. [Suspect]
     Active Substance: METHOTREXATE
     Indication: ACUTE MYELOID LEUKAEMIA
     Dosage: INCONNU
     Route: 051
     Dates: start: 198412, end: 1985
  4. CYTARABINE. [Suspect]
     Active Substance: CYTARABINE
     Indication: MYELOID LEUKAEMIA
     Dosage: INCONNU
     Route: 051
     Dates: start: 198412, end: 1985
  5. RUBIDAZONE [Suspect]
     Active Substance: ZORUBICIN HYDROCHLORIDE
     Indication: ACUTE MYELOID LEUKAEMIA
     Dosage: 800 MILLIGRAM/SQ. METER, CYCLE
     Route: 051
     Dates: start: 198412, end: 1985

REACTIONS (1)
  - Acute promyelocytic leukaemia [Recovered/Resolved]

NARRATIVE: CASE EVENT DATE: 200809
